FAERS Safety Report 6324845-6 (Version None)
Quarter: 2009Q3

REPORT INFORMATION
  Report Type: 
  Country: None (occurrence: None)
  Receive Date: 20090824
  Receipt Date: 20090622
  Transmission Date: 20100115
  Serious: No
  Sender: FDA-Public Use
  Company Number: US-ABBOTT-09P-163-0581311-00

PATIENT
  Sex: Male
  Weight: 104.42 kg

DRUGS (10)
  1. NIASPAN [Suspect]
     Indication: LOW DENSITY LIPOPROTEIN INCREASED
     Dates: start: 20090612
  2. NIASPAN [Suspect]
     Indication: HIGH DENSITY LIPOPROTEIN DECREASED
  3. ACTOPLUS MET [Concomitant]
     Indication: DRUG USE FOR UNKNOWN INDICATION
     Dosage: DAILY
  4. KLOR-CON [Concomitant]
     Indication: DRUG USE FOR UNKNOWN INDICATION
  5. MULTI-VITAMIN [Concomitant]
     Indication: DRUG USE FOR UNKNOWN INDICATION
  6. PRAVASTATIN [Concomitant]
     Indication: DRUG USE FOR UNKNOWN INDICATION
  7. FIBER [Concomitant]
     Indication: DRUG USE FOR UNKNOWN INDICATION
  8. LISINOPRIL [Concomitant]
     Indication: DRUG USE FOR UNKNOWN INDICATION
     Dosage: 20MG X 1/2 TABLET AT BEDTIME
  9. FUROSEMIDE [Concomitant]
     Indication: DRUG USE FOR UNKNOWN INDICATION
     Dosage: DAILY
  10. ASPIRIN [Concomitant]
     Indication: DRUG USE FOR UNKNOWN INDICATION

REACTIONS (3)
  - ABDOMINAL DISCOMFORT [None]
  - FEELING HOT [None]
  - POLLAKIURIA [None]
